FAERS Safety Report 16209061 (Version 1)
Quarter: 2019Q2

REPORT INFORMATION
  Report Type: Spontaneous
  Country: PL (occurrence: PL)
  Receive Date: 20190417
  Receipt Date: 20190417
  Transmission Date: 20190711
  Serious: Yes (Other)
  Sender: FDA-Public Use
  Company Number: PHHY2019PL086970

PATIENT
  Age: 36 Year
  Sex: Female
  Weight: 78 kg

DRUGS (2)
  1. ENBREL [Concomitant]
     Active Substance: ETANERCEPT
     Indication: PSORIATIC ARTHROPATHY
     Dosage: 50 MG, QW
     Route: 058
     Dates: start: 20141031
  2. METHOTREXAT [Suspect]
     Active Substance: METHOTREXATE
     Indication: PSORIATIC ARTHROPATHY
     Dosage: 15 MG, QW
     Route: 048
     Dates: start: 20141031, end: 20160920

REACTIONS (7)
  - Eructation [Recovering/Resolving]
  - Hepatic steatosis [Recovering/Resolving]
  - Nausea [Recovering/Resolving]
  - Hepatic pain [Recovering/Resolving]
  - Epigastric discomfort [Recovering/Resolving]
  - Hepatomegaly [Recovering/Resolving]
  - Dyspepsia [Recovering/Resolving]

NARRATIVE: CASE EVENT DATE: 20160601
